FAERS Safety Report 6473577-2 (Version None)
Quarter: 2009Q4

REPORT INFORMATION
  Report Type: 
  Country: None (occurrence: None)
  Receive Date: 20091204
  Receipt Date: 20090518
  Transmission Date: 20100525
  Serious: No
  Sender: FDA-Public Use
  Company Number: CH-ELI_LILLY_AND_COMPANY-CH200811005068

PATIENT
  Age: 29 Year
  Sex: Female
  Weight: 61 kg

DRUGS (4)
  1. ZYPREXA [Suspect]
     Indication: ANXIETY DISORDER
     Dosage: 2.5 MG, DAILY (1/D)
     Route: 048
     Dates: start: 20081115, end: 20081214
  2. ZYPREXA [Suspect]
     Dosage: 2.5 MG, QOD
     Route: 048
     Dates: start: 20081215, end: 20090110
  3. GYNO-CANESTEN [Concomitant]
     Indication: FUNGAL INFECTION
     Dosage: UNK, DAILY (1/D)
     Route: 067
     Dates: start: 20081201, end: 20081207
  4. MAGNESIOCARD [Concomitant]
     Indication: MUSCLE SPASMS
     Dosage: UNK, 3/D
     Route: 048
     Dates: start: 20080929

REACTIONS (2)
  - ANAEMIA [None]
  - DRUG EXPOSURE DURING PREGNANCY [None]
